FAERS Safety Report 8993158 (Version 1)
Quarter: 2013Q1

REPORT INFORMATION
  Report Type: Spontaneous
  Country: BE (occurrence: BE)
  Receive Date: 20130102
  Receipt Date: 20130102
  Transmission Date: 20140127
  Serious: Yes (Life-Threatening, Hospitalization)
  Sender: FDA-Public Use
  Company Number: BE-ROCHE-1173108

PATIENT
  Age: 61 Year
  Sex: Male
  Weight: 85 kg

DRUGS (13)
  1. MIRCERA [Suspect]
     Indication: ANAEMIA
     Route: 042
     Dates: end: 20121213
  2. INJECTAFER [Concomitant]
     Indication: ANAEMIA
     Route: 065
     Dates: start: 20121113
  3. NOVORAPID [Concomitant]
     Route: 065
  4. INSULATARD [Concomitant]
     Route: 065
  5. CLEXANE [Concomitant]
     Indication: ATRIAL FIBRILLATION
     Route: 065
  6. XYZALL [Concomitant]
     Route: 065
  7. BURINEX [Concomitant]
     Route: 065
  8. CORDARONE [Concomitant]
     Route: 065
  9. PANTOMED (BELGIUM) [Concomitant]
     Route: 065
  10. DOBUTAMINE [Concomitant]
  11. AMIODARONE [Concomitant]
  12. FLOXAPEN [Concomitant]
  13. GLYPRESSINE [Concomitant]

REACTIONS (2)
  - Presyncope [Recovered/Resolved]
  - Malaise [Recovered/Resolved]
